FAERS Safety Report 5854342-3 (Version None)
Quarter: 2008Q3

REPORT INFORMATION
  Report Type: 
  Country: None (occurrence: None)
  Receive Date: 20080822
  Receipt Date: 20080819
  Transmission Date: 20090109
  Serious: Yes (Hospitalization)
  Sender: FDA-Public Use
  Company Number: US-BOEHRINGER INGELHEIM GMBH, GERMANY-2008-BP-13031RO

PATIENT
  Sex: Female
  Weight: 71 kg

DRUGS (17)
  1. MORPHINE [Suspect]
  2. FLECAINIDE ACETATE [Suspect]
  3. BONIVA [Suspect]
     Indication: OSTEOPOROSIS
     Route: 048
     Dates: start: 20080118, end: 20080506
  4. CORTICOSTEROID [Suspect]
     Indication: MUSCULOSKELETAL PAIN
     Dates: start: 20080401
  5. WARFARIN SODIUM [Concomitant]
     Dates: start: 20080714, end: 20080714
  6. ATENOLOL [Concomitant]
  7. AVAPRO [Concomitant]
  8. SIMVASTIN [Concomitant]
  9. SPIRONOLACTONE [Concomitant]
  10. PNEUMONIA VACCINE [Concomitant]
  11. FLU VACCINATION [Concomitant]
  12. HYDROCHLOROTHIAZIDE [Concomitant]
  13. LISINOPRIL [Concomitant]
  14. MULTI-VITAMIN [Concomitant]
  15. UNSPECIFIED MEDICATION [Concomitant]
  16. CALCIUM/VITAMIN D [Concomitant]
  17. FLAX SEED OIL [Concomitant]

REACTIONS (19)
  - BACK PAIN [None]
  - BLOOD PRESSURE INCREASED [None]
  - BLOOD SODIUM DECREASED [None]
  - BRONCHITIS [None]
  - COUGH [None]
  - DYSPNOEA [None]
  - GROIN PAIN [None]
  - HAEMORRHOIDS [None]
  - HEADACHE [None]
  - HYPERTENSION [None]
  - JOINT SWELLING [None]
  - MUSCULOSKELETAL PAIN [None]
  - NASAL CONGESTION [None]
  - OSTEOARTHRITIS [None]
  - PAIN [None]
  - SINUS CONGESTION [None]
  - SMALL INTESTINAL OBSTRUCTION [None]
  - UPPER RESPIRATORY TRACT INFECTION [None]
  - VISION BLURRED [None]
